FAERS Safety Report 9715733 (Version 1)
Quarter: 2013Q4

REPORT INFORMATION
  Report Type: Spontaneous
  Country: RU (occurrence: RU)
  Receive Date: 20131127
  Receipt Date: 20131127
  Transmission Date: 20140711
  Serious: Yes (Hospitalization)
  Sender: FDA-Public Use
  Company Number: RU-JNJFOC-20131112707

PATIENT
  Age: 23 Year
  Sex: Male
  Weight: 73 kg

DRUGS (2)
  1. REMICADE [Suspect]
     Indication: BURSITIS
     Route: 042
     Dates: start: 20130507, end: 201305
  2. REMICADE [Suspect]
     Indication: ARTHRITIS REACTIVE
     Route: 042
     Dates: start: 20130507, end: 201305

REACTIONS (2)
  - Ankylosing spondylitis [Unknown]
  - Arthritis [Unknown]
